APPROVED DRUG PRODUCT: DIAZEPAM
Active Ingredient: DIAZEPAM
Strength: 5MG/ML
Dosage Form/Route: INJECTABLE;INJECTION
Application: A071310 | Product #001
Applicant: HIKMA PHARMACEUTICALS USA INC
Approved: Jul 17, 1987 | RLD: No | RS: No | Type: DISCN